FAERS Safety Report 7015102-3 (Version None)
Quarter: 2010Q3

REPORT INFORMATION
  Report Type: 
  Country: None (occurrence: None)
  Receive Date: 20100927
  Receipt Date: 20091214
  Transmission Date: 20110219
  Serious: No
  Sender: FDA-Public Use
  Company Number: US-ASTRAZENECA-2009SE32198

PATIENT
  Age: 63 Year
  Sex: Female

DRUGS (1)
  1. ARIMIDEX [Suspect]
     Route: 048
     Dates: start: 20050601, end: 20091211

REACTIONS (5)
  - ASTHENIA [None]
  - DIZZINESS [None]
  - DRUG DOSE OMISSION [None]
  - INCISION SITE PAIN [None]
  - STOMATITIS [None]
